FAERS Safety Report 7357441-2 (Version None)
Quarter: 2011Q1

REPORT INFORMATION
  Report Type: 
  Country: None (occurrence: None)
  Receive Date: 20110317
  Receipt Date: 20110121
  Transmission Date: 20110831
  Serious: Yes (Hospitalization, Other)
  Sender: FDA-Public Use
  Company Number: US-BAYER-2011-023364

PATIENT
  Sex: Female
  Weight: 61 kg

DRUGS (1)
  1. YAZ [Suspect]
     Indication: OVARIAN CYST
     Dosage: UNK
     Dates: start: 20070614, end: 20070713

REACTIONS (5)
  - PAIN IN EXTREMITY [None]
  - PULMONARY EMBOLISM [None]
  - DYSPNOEA [None]
  - CHEST PAIN [None]
  - DEEP VEIN THROMBOSIS [None]
